FAERS Safety Report 4333995-5 (Version None)
Quarter: 2004Q2

REPORT INFORMATION
  Report Type: 
  Country: None (occurrence: None)
  Receive Date: 20040402
  Receipt Date: 20040322
  Transmission Date: 20050107
  Serious: Yes (Hospitalization)
  Sender: FDA-Public Use
  Company Number: FR-SHR-04-022309

PATIENT
  Age: 36 Year
  Sex: Female
  Weight: 65 kg

DRUGS (1)
  1. MIRENA [Suspect]
     Indication: CONTRACEPTION
     Dosage: 20 UG/DAY, CONT, INTRA-UTERINE
     Route: 015
     Dates: start: 20021101

REACTIONS (5)
  - ARTHRALGIA [None]
  - CONNECTIVE TISSUE DISORDER [None]
  - DRUG INEFFECTIVE [None]
  - IMMUNOGLOBULINS INCREASED [None]
  - SJOGREN'S SYNDROME [None]
